FAERS Safety Report 8261273-0 (Version None)
Quarter: 2012Q2

REPORT INFORMATION
  Report Type: 
  Country: None (occurrence: None)
  Receive Date: 20120405
  Receipt Date: 20120328
  Transmission Date: 20120825
  Serious: Yes (Hospitalization)
  Sender: FDA-Public Use
  Company Number: US-SANOFI-AVENTIS-2012SA012736

PATIENT
  Age: 67 Year
  Sex: Female
  Weight: 84.54 kg

DRUGS (8)
  1. LANTUS [Suspect]
     Dosage: 24 U IN AM AND 28 U IN PMI
     Route: 058
  2. LORAZEPAM [Concomitant]
     Indication: SLEEP DISORDER
     Dates: start: 20100101
  3. SOLOSTAR [Suspect]
  4. APIDRA [Suspect]
     Dosage: 6 UNITS WITH BREAKFAST IN AM, 6 UNITS WITH LUNCH AND 6 UNITS WITH DINNER
     Route: 058
  5. CRESTOR [Concomitant]
     Dates: start: 20090101
  6. RAMIPRIL [Concomitant]
     Indication: PROPHYLAXIS
     Dates: start: 20100101
  7. WARFARIN SODIUM [Concomitant]
  8. LEVOTHYROXINE SODIUM [Concomitant]
     Indication: THYROID DISORDER
     Dates: start: 19990101

REACTIONS (6)
  - PYELONEPHRITIS [None]
  - LOWER LIMB FRACTURE [None]
  - PULMONARY EMBOLISM [None]
  - URETHRITIS [None]
  - COAGULATION TIME PROLONGED [None]
  - BLOOD GLUCOSE FLUCTUATION [None]
